FAERS Safety Report 8957699 (Version 2)
Quarter: 2013Q1

REPORT INFORMATION
  Report Type: Spontaneous
  Country: US (occurrence: US)
  Receive Date: 20121211
  Receipt Date: 20130118
  Transmission Date: 20140127
  Serious: Yes (Hospitalization, Other)
  Sender: FDA-Public Use
  Company Number: US-ELI_LILLY_AND_COMPANY-US201211008997

PATIENT
  Age: 73 Year
  Sex: Male

DRUGS (8)
  1. CYMBALTA [Suspect]
     Indication: DEPRESSION
     Dosage: 60 MG, QD
     Route: 048
     Dates: start: 201112, end: 20121117
  2. BYETTA [Concomitant]
  3. ACTOS [Concomitant]
  4. ATIVAN [Concomitant]
  5. SIMVASTATIN [Concomitant]
  6. GLUMETZA [Concomitant]
  7. SONATA [Concomitant]
  8. ASA [Concomitant]
     Dosage: 81 MG, UNKNOWN

REACTIONS (6)
  - Craniocerebral injury [Recovering/Resolving]
  - Spinal compression fracture [Recovering/Resolving]
  - Haemorrhage intracranial [Unknown]
  - Fall [Recovered/Resolved with Sequelae]
  - Amnesia [Unknown]
  - Insomnia [Recovered/Resolved]
